FAERS Safety Report 9159522 (Version 4)
Quarter: 2013Q2

REPORT INFORMATION
  Report Type: Spontaneous
  Country: US (occurrence: US)
  Receive Date: 20130313
  Receipt Date: 20130426
  Transmission Date: 20140414
  Serious: Yes (Hospitalization)
  Sender: FDA-Public Use
  Company Number: US-SANOFI-AVENTIS-2013SA021950

PATIENT
  Age: 58 Year
  Sex: Female

DRUGS (11)
  1. LOVENOX [Suspect]
     Indication: PRODUCT USED FOR UNKNOWN INDICATION
     Route: 058
  2. TRASTUZUMAB EMTANSINE [Concomitant]
     Indication: BREAST CANCER METASTATIC
     Route: 042
     Dates: start: 20130122
  3. DILAUDID [Concomitant]
     Indication: PAIN
  4. SYNTHROID [Concomitant]
     Dosage: DOSE: 0.125 UNIT NOT REPORTED
  5. MEGACE [Concomitant]
     Route: 048
  6. TAXOTERE [Concomitant]
     Dates: start: 200412
  7. FASLODEX [Concomitant]
  8. PACLITAXEL [Concomitant]
  9. TAMOXIFEN [Concomitant]
  10. NAVELBINE [Concomitant]
  11. ERIBULIN MESILATE [Concomitant]

REACTIONS (1)
  - Upper gastrointestinal haemorrhage [Recovered/Resolved]
